FAERS Safety Report 25890042 (Version 1)
Quarter: 2025Q4

REPORT INFORMATION
  Report Type: Report from Study
  Country: CA (occurrence: CA)
  Receive Date: 20251007
  Receipt Date: 20251007
  Transmission Date: 20260117
  Serious: Yes (Other)
  Sender: NOVARTIS
  Company Number: CA-002147023-NVSC2025CA153738

PATIENT
  Age: 38 Year
  Sex: Female

DRUGS (1)
  1. KESIMPTA [Suspect]
     Active Substance: OFATUMUMAB
     Indication: Relapsing-remitting multiple sclerosis
     Dosage: UNK
     Route: 058
     Dates: start: 20240926

REACTIONS (6)
  - Ophthalmoplegia [Unknown]
  - Neuropsychological test abnormal [Unknown]
  - Hypertonia [Unknown]
  - Decreased vibratory sense [Unknown]
  - Muscle spasticity [Unknown]
  - Muscle strength abnormal [Unknown]
